FAERS Safety Report 14803803 (Version 1)
Quarter: 2018Q2

REPORT INFORMATION
  Report Type: Spontaneous
  Country: US (occurrence: US)
  Receive Date: 20180425
  Receipt Date: 20180425
  Transmission Date: 20180711
  Serious: No
  Sender: FDA-Public Use
  Company Number: US-009507513-1804USA001153

PATIENT
  Age: 73 Year
  Sex: Male

DRUGS (4)
  1. BUMETANIDE. [Suspect]
     Active Substance: BUMETANIDE
  2. METOPROLOL. [Suspect]
     Active Substance: METOPROLOL
  3. PRINIVIL [Suspect]
     Active Substance: LISINOPRIL
  4. ROSUVASTATIN. [Suspect]
     Active Substance: ROSUVASTATIN
     Dosage: UNK

REACTIONS (2)
  - Drug eruption [Recovered/Resolved]
  - Cutaneous T-cell dyscrasia [Recovered/Resolved]
